FAERS Safety Report 21632450 (Version 1)
Quarter: 2022Q4

REPORT INFORMATION
  Report Type: Spontaneous
  Country: US (occurrence: None)
  Receive Date: 20221122
  Receipt Date: 20221122
  Transmission Date: 20230112
  Serious: Yes (Hospitalization)
  Sender: FDA-Public Use
  Company Number: None

PATIENT
  Age: 59 Year
  Sex: Female

DRUGS (1)
  1. CAPECITABINE [Suspect]
     Active Substance: CAPECITABINE
     Dosage: 1500MG BID ORAL
     Route: 048
     Dates: end: 202211

REACTIONS (4)
  - Abdominal pain [None]
  - Neuropathy peripheral [None]
  - Colostomy [None]
  - Off label use [None]

NARRATIVE: CASE EVENT DATE: 20221020
